FAERS Safety Report 24121882 (Version 2)
Quarter: 2024Q3

REPORT INFORMATION
  Report Type: Spontaneous
  Country: US (occurrence: US)
  Receive Date: 20240722
  Receipt Date: 20240820
  Transmission Date: 20241016
  Serious: No
  Sender: SANOFI AVENTIS
  Company Number: US-SA-SAC20240718000793

PATIENT
  Age: 56 Year
  Sex: Female

DRUGS (1)
  1. DUPIXENT [Suspect]
     Active Substance: DUPILUMAB
     Indication: Dermatitis atopic
     Dosage: 300 MG, QOW
     Route: 058
     Dates: start: 2017

REACTIONS (7)
  - Nerve injury [Unknown]
  - Migraine [Unknown]
  - Nausea [Unknown]
  - Brain fog [Unknown]
  - Injection site erythema [Unknown]
  - Injection site bruising [Unknown]
  - Bedridden [Unknown]
